FAERS Safety Report 8562825-0 (Version None)
Quarter: 2012Q3

REPORT INFORMATION
  Report Type: 
  Country: None (occurrence: None)
  Receive Date: 20120802
  Receipt Date: 20120718
  Transmission Date: 20120928
  Serious: Yes (Hospitalization, Other)
  Sender: FDA-Public Use
  Company Number: US-AMGEN-USASP2012044530

PATIENT
  Age: 74 Year
  Sex: Female

DRUGS (3)
  1. ENBREL [Suspect]
     Indication: RHEUMATOID ARTHRITIS
     Dosage: 50 MG, QWK
     Route: 058
     Dates: start: 20120525, end: 20120601
  2. PLAQUENIL [Concomitant]
     Dosage: 400 MG, QD
     Dates: start: 20120410
  3. TREXALL [Concomitant]
     Dosage: 2.5 MG, UNK
     Dates: start: 20120410

REACTIONS (2)
  - CARDIAC FAILURE CONGESTIVE [None]
  - SKIN CANCER [None]
